FAERS Safety Report 6140408-X (Version None)
Quarter: 2009Q1

REPORT INFORMATION
  Report Type: 
  Country: None (occurrence: None)
  Receive Date: 20090331
  Receipt Date: 20090325
  Transmission Date: 20090719
  Serious: Yes (Death, Other)
  Sender: FDA-Public Use
  Company Number: 1000002972

PATIENT
  Age: 38 Year
  Sex: Male

DRUGS (2)
  1. CAMPRAL [Suspect]
     Indication: ABSTAINS FROM ALCOHOL
     Dosage: 1998 MG (666 MG, 3 IN 1 D), ORAL
     Route: 048
     Dates: start: 20070401, end: 20081201
  2. FLUOXETINE [Concomitant]

REACTIONS (3)
  - LOCAL SWELLING [None]
  - LYMPHADENOPATHY [None]
  - NECK PAIN [None]
